FAERS Safety Report 6547767-4 (Version None)
Quarter: 2010Q1

REPORT INFORMATION
  Report Type: 
  Country: None (occurrence: None)
  Receive Date: 20100124
  Receipt Date: 20091026
  Transmission Date: 20100710
  Serious: No
  Sender: FDA-Public Use
  Company Number: US-ALEXION-A200900881

PATIENT
  Sex: Female

DRUGS (9)
  1. SOLIRIS [Suspect]
     Indication: PAROXYSMAL NOCTURNAL HAEMOGLOBINURIA
     Dosage: 600 MG, QW X4
     Route: 042
     Dates: start: 20090310
  2. SOLIRIS [Suspect]
     Dosage: 900 MG, Q2W
     Route: 042
     Dates: start: 20090408, end: 20090101
  3. SOLIRIS [Suspect]
     Dosage: 900 MG, Q12 DAYS
     Route: 042
     Dates: start: 20090101
  4. KEPPRA [Concomitant]
     Dosage: 500 MG, BID
     Route: 048
  5. ZOCOR [Concomitant]
     Dosage: 40 MG, QD
     Route: 048
  6. PREDNISONE [Concomitant]
     Dosage: 30 MG, QD
     Route: 048
  7. COUMADIN [Concomitant]
     Dosage: 6 MG, QD
     Route: 048
  8. COREG [Concomitant]
     Dosage: 6.25 MG, BID
     Route: 048
  9. PREVACID [Concomitant]
     Dosage: 30 MG, QD
     Route: 048

REACTIONS (4)
  - BLOOD PRODUCT TRANSFUSION DEPENDENT [None]
  - HAEMATOCRIT DECREASED [None]
  - HAEMOGLOBIN DECREASED [None]
  - HERPES ZOSTER [None]
